FAERS Safety Report 10621782 (Version 1)
Quarter: 2014Q4

REPORT INFORMATION
  Report Type: Spontaneous
  Country: US (occurrence: None)
  Receive Date: 20141201
  Receipt Date: 20141201
  Transmission Date: 20150529
  Serious: Yes (Other)
  Sender: FDA-Public Use
  Company Number: None

PATIENT
  Age: 64 Year
  Sex: Male

DRUGS (1)
  1. XTANDI [Suspect]
     Active Substance: ENZALUTAMIDE
     Indication: NEOPLASM MALIGNANT
     Route: 048
     Dates: start: 20141010, end: 20141128

REACTIONS (7)
  - Decreased appetite [None]
  - Fatigue [None]
  - Feeling abnormal [None]
  - Weight decreased [None]
  - Asthenia [None]
  - Nausea [None]
  - Constipation [None]

NARRATIVE: CASE EVENT DATE: 20141128
